FAERS Safety Report 6728396-6 (Version None)
Quarter: 2010Q2

REPORT INFORMATION
  Report Type: 
  Country: None (occurrence: None)
  Receive Date: 20100517
  Receipt Date: 20100504
  Transmission Date: 20101027
  Serious: Yes (Hospitalization)
  Sender: FDA-Public Use
  Company Number: NL-MEDIMMUNE-MEDI-0011061

PATIENT
  Sex: Male
  Weight: 10.3 kg

DRUGS (2)
  1. SYNAGIS [Suspect]
     Route: 030
     Dates: start: 20090907, end: 20100211
  2. SYNAGIS [Suspect]
     Route: 030
     Dates: start: 20100211, end: 20100408

REACTIONS (4)
  - EPILEPSY [None]
  - OXYGEN SATURATION DECREASED [None]
  - RESPIRATORY TRACT INFECTION [None]
  - VOMITING [None]
